FAERS Safety Report 7944911-9 (Version None)
Quarter: 2011Q4

REPORT INFORMATION
  Report Type: 
  Country: None (occurrence: None)
  Receive Date: 20111129
  Receipt Date: 20110920
  Transmission Date: 20120403
  Serious: Yes (Other)
  Sender: FDA-Public Use
  Company Number: US-MYLANLABS-2010S1018527

PATIENT
  Age: 59 Year
  Sex: Female

DRUGS (6)
  1. LEVETIRACETAM [Suspect]
  2. LEVETIRACETAM [Suspect]
  3. LEVETIRACETAM [Suspect]
  4. DEPAKOTE [Concomitant]
     Indication: EPILEPSY
  5. REBIF [Suspect]
     Indication: MULTIPLE SCLEROSIS
     Route: 058
     Dates: start: 20060906
  6. LEVETIRACETAM [Suspect]
     Indication: EPILEPSY

REACTIONS (2)
  - WHITE BLOOD CELL COUNT DECREASED [None]
  - RED BLOOD CELL COUNT DECREASED [None]
